FAERS Safety Report 19748153 (Version 1)
Quarter: 2021Q3

REPORT INFORMATION
  Report Type: Spontaneous
  Country: GB (occurrence: GB)
  Receive Date: 20210825
  Receipt Date: 20210825
  Transmission Date: 20211014
  Serious: Yes (Hospitalization)
  Sender: FDA-Public Use
  Company Number: GB-PRINSTON PHARMACEUTICAL INC.-2021PRN00303

PATIENT
  Age: 38 Year
  Sex: Male

DRUGS (1)
  1. AMPHETAMINE [Suspect]
     Active Substance: AMPHETAMINE
     Dosage: 1 G, 1X/DAY
     Route: 045

REACTIONS (3)
  - Cardiac failure [Unknown]
  - Thrombosis [Unknown]
  - Cardiomyopathy [Unknown]
